FAERS Safety Report 6595084-9 (Version None)
Quarter: 2010Q1

REPORT INFORMATION
  Report Type: 
  Country: None (occurrence: None)
  Receive Date: 20100212
  Receipt Date: 20100203
  Transmission Date: 20100710
  Serious: Yes (Hospitalization)
  Sender: FDA-Public Use
  Company Number: 2010SP004622

PATIENT
  Age: 70 Year
  Sex: Female

DRUGS (2)
  1. PEG-INTRON [Suspect]
     Indication: HEPATITIS C
     Dosage: 60 MCG;QW;SC, 60 MCG;QW;SC
     Route: 058
     Dates: start: 20080619
  2. REBETOL [Suspect]
     Indication: HEPATITIS C
     Dosage: 800 MG;QD;PO, 600 MG;QD;PO, 400 MG;QD;PO, 400 MG;QD;PO
     Route: 048
     Dates: start: 20080619

REACTIONS (5)
  - ANAEMIA [None]
  - GASTRIC ANTRAL VASCULAR ECTASIA [None]
  - GASTRIC HAEMORRHAGE [None]
  - GASTRIC MUCOSAL LESION [None]
  - PORTAL HYPERTENSION [None]
